FAERS Safety Report 9929193 (Version 1)
Quarter: 2014Q1

REPORT INFORMATION
  Report Type: Spontaneous
  Country: US (occurrence: None)
  Receive Date: 20140225
  Receipt Date: 20140225
  Transmission Date: 20141002
  Serious: Yes (Hospitalization, Other)
  Sender: FDA-Public Use
  Company Number: 2010S1000489

PATIENT
  Age: 61 Year
  Sex: Female

DRUGS (1)
  1. FLEET PHOSPHO-SODA [Suspect]
     Indication: COLONOSCOPY
     Dosage: MIX 1/2 OUNCE IN 8 OUNCES LIQUID, REPEAT TWO MORE TIMES. DO THIS AT 12:00PM AND 6:00PM, 2 IN 24 HOURS, ORAL
     Route: 048
     Dates: start: 20081026, end: 20081026

REACTIONS (11)
  - Diverticulum [None]
  - Haemorrhoids [None]
  - Colon neoplasm [None]
  - Abdominal distension [None]
  - Abdominal pain [None]
  - Mental status changes [None]
  - Renal failure acute [None]
  - Electrolyte imbalance [None]
  - Postoperative ileus [None]
  - Small intestinal obstruction [None]
  - Sepsis [None]
